FAERS Safety Report 12987120 (Version 5)
Quarter: 2016Q4

REPORT INFORMATION
  Report Type: Spontaneous
  Country: IT (occurrence: IT)
  Receive Date: 20161130
  Receipt Date: 20161222
  Transmission Date: 20170207
  Serious: Yes (Other)
  Sender: FDA-Public Use
  Company Number: IT-TEVA-714126ISR

PATIENT
  Age: 60 Year
  Sex: Female

DRUGS (1)
  1. LETROZOL FILM COATED TABLET [Suspect]
     Active Substance: LETROZOLE
     Indication: INVASIVE DUCTAL BREAST CARCINOMA
     Dosage: 2.5 MILLIGRAM DAILY;
     Route: 048
     Dates: start: 20120101, end: 20131101

REACTIONS (2)
  - Metastases to bone [Unknown]
  - Therapeutic response decreased [Unknown]

NARRATIVE: CASE EVENT DATE: 20131101
